FAERS Safety Report 19368668 (Version 1)
Quarter: 2021Q2

REPORT INFORMATION
  Report Type: Spontaneous
  Country: US (occurrence: US)
  Receive Date: 20210602
  Receipt Date: 20210602
  Transmission Date: 20210717
  Serious: No
  Sender: FDA-Public Use
  Company Number: US-ROCHE-2689790

PATIENT
  Age: 40 Year
  Sex: Female

DRUGS (1)
  1. OCREVUS [Suspect]
     Active Substance: OCRELIZUMAB
     Indication: MULTIPLE SCLEROSIS
     Dosage: LAST DOSE ON 24/SEP/2020
     Route: 042

REACTIONS (3)
  - Dyspnoea [Unknown]
  - Throat irritation [Unknown]
  - Ear pruritus [Unknown]

NARRATIVE: CASE EVENT DATE: 20200924
